FAERS Safety Report 23007119 (Version 2)
Quarter: 2023Q4

REPORT INFORMATION
  Report Type: Report from Study
  Country: US (occurrence: US)
  Receive Date: 20230929
  Receipt Date: 20231009
  Transmission Date: 20240109
  Serious: Yes (Hospitalization, Other)
  Sender: FDA-Public Use
  Company Number: US-GILEAD-2022-0590335

PATIENT
  Age: 79 Year
  Sex: Male

DRUGS (2)
  1. AZTREONAM LYSINE [Suspect]
     Active Substance: AZTREONAM LYSINE
     Indication: Cystic fibrosis
     Dosage: 75 MG, TID
     Route: 055
     Dates: start: 20200907
  2. AZTREONAM LYSINE [Suspect]
     Active Substance: AZTREONAM LYSINE
     Dosage: 75 MG, TID (AMPULE/ INHALING THE CONTENTS OF ONE VILE)
     Route: 055
     Dates: start: 20200911

REACTIONS (4)
  - Pneumonia [Recovering/Resolving]
  - Fall [Recovering/Resolving]
  - Bone contusion [Recovering/Resolving]
  - Weight decreased [Unknown]
